APPROVED DRUG PRODUCT: GLIMEPIRIDE
Active Ingredient: GLIMEPIRIDE
Strength: 4MG
Dosage Form/Route: TABLET;ORAL
Application: A077280 | Product #003
Applicant: WATSON LABORATORIES INC
Approved: Feb 3, 2006 | RLD: No | RS: No | Type: DISCN